FAERS Safety Report 15916394 (Version 1)
Quarter: 2019Q1

REPORT INFORMATION
  Report Type: Spontaneous
  Country: US (occurrence: US)
  Receive Date: 20190114
  Receipt Date: 20190114
  Transmission Date: 20190417
  Serious: Yes (Hospitalization, Other)
  Sender: FDA-Public Use
  Company Number: None

PATIENT
  Age: 56 Year
  Sex: Female

DRUGS (6)
  1. PREMARIN [Concomitant]
     Active Substance: ESTROGENS, CONJUGATED
  2. VITAMIN D3 [Concomitant]
     Active Substance: CHOLECALCIFEROL
  3. WOMENS CAP MULTI [Concomitant]
  4. HUMIRA [Suspect]
     Active Substance: ADALIMUMAB
     Indication: PSORIASIS
     Route: 058
     Dates: start: 20160305
  5. VITAMIN C [Concomitant]
     Active Substance: ASCORBIC ACID
  6. CALCIUM CHEW [Concomitant]

REACTIONS (3)
  - Diarrhoea [None]
  - Psoriasis [None]
  - Therapy cessation [None]

NARRATIVE: CASE EVENT DATE: 20181001
